FAERS Safety Report 7670070-6 (Version None)
Quarter: 2011Q3

REPORT INFORMATION
  Report Type: 
  Country: None (occurrence: None)
  Receive Date: 20110808
  Receipt Date: 20110802
  Transmission Date: 20111222
  Serious: Yes (Hospitalization)
  Sender: FDA-Public Use
  Company Number: IT-AMGEN-ITACT2011036545

PATIENT
  Age: 66 Year
  Sex: Female
  Weight: 48 kg

DRUGS (8)
  1. LEUCOVORIN CALCIUM [Concomitant]
     Indication: COLORECTAL CANCER METASTATIC
     Dosage: 280 MG, UNK
     Dates: start: 20110523
  2. LANSOPRAZOLE [Concomitant]
     Dosage: 15 MG, UNK
     Dates: start: 20110519
  3. CEFIXIME [Concomitant]
     Dosage: 400 MG, QD
     Dates: start: 20110519, end: 20110524
  4. PANITUMUMAB [Suspect]
     Indication: COLORECTAL CANCER METASTATIC
     Dosage: 288 MG, UNK
     Dates: start: 20110523
  5. OXALIPLATIN [Concomitant]
     Indication: COLORECTAL CANCER METASTATIC
     Dosage: 122 MG, UNK
     Dates: start: 20110523
  6. FLUOROURACIL [Concomitant]
     Indication: COLORECTAL CANCER METASTATIC
     Dosage: 3456 MG, UNK
     Dates: start: 20110523
  7. FONDAPARINUX SODIUM [Concomitant]
     Indication: VENOUS THROMBOSIS
     Dosage: 5 MG, UNK
     Route: 058
     Dates: start: 20110519
  8. IRINOTECAN HCL [Concomitant]
     Indication: COLORECTAL CANCER METASTATIC
     Dosage: 216 MG, UNK
     Dates: start: 20110523

REACTIONS (5)
  - DIARRHOEA [None]
  - STOMATITIS [None]
  - ASTHENIA [None]
  - DECREASED APPETITE [None]
  - VOMITING [None]
